FAERS Safety Report 6248347-0 (Version None)
Quarter: 2009Q2

REPORT INFORMATION
  Report Type: 
  Country: None (occurrence: None)
  Receive Date: 20090629
  Receipt Date: 20090622
  Transmission Date: 20091009
  Serious: Yes (Other)
  Sender: FDA-Public Use
  Company Number: PHHY2009MX25213

PATIENT
  Age: 36 Year
  Sex: Female

DRUGS (1)
  1. ZELMAC [Suspect]
     Indication: IRRITABLE BOWEL SYNDROME
     Dosage: 2 TABLETS (6MG) PER DAY
     Route: 048
     Dates: start: 20090501

REACTIONS (3)
  - DEPRESSION [None]
  - NERVOUSNESS [None]
  - POLYURIA [None]
